FAERS Safety Report 6603014-6 (Version None)
Quarter: 2010Q1

REPORT INFORMATION
  Report Type: 
  Country: None (occurrence: None)
  Receive Date: 20100226
  Receipt Date: 20100219
  Transmission Date: 20100710
  Serious: Yes (Other)
  Sender: FDA-Public Use
  Company Number: US-BAYER-201014866NA

PATIENT
  Sex: Female

DRUGS (2)
  1. MIRENA [Suspect]
     Indication: CONTRACEPTION
     Route: 015
     Dates: start: 20090619, end: 20090625
  2. MIRENA [Suspect]
     Route: 015
     Dates: start: 20090720

REACTIONS (1)
  - UTERINE PERFORATION [None]
